FAERS Safety Report 9030398 (Version 2)
Quarter: 2013Q1

REPORT INFORMATION
  Report Type: Spontaneous
  Country: JP (occurrence: JP)
  Receive Date: 20130122
  Receipt Date: 20130311
  Transmission Date: 20140127
  Serious: Yes (Other)
  Sender: FDA-Public Use
  Company Number: JP-BAYER-2013-008298

PATIENT
  Age: 37 Year
  Sex: Male
  Weight: 54 kg

DRUGS (15)
  1. NEXAVAR [Suspect]
     Indication: HEPATOCELLULAR CARCINOMA
     Dosage: 200 MG, BID
     Route: 048
     Dates: start: 20130108, end: 20130116
  2. VONAFEC [Suspect]
     Indication: PYREXIA
     Dosage: UNK
     Route: 054
     Dates: start: 20121220
  3. NEXIUM [Concomitant]
     Indication: GASTROOESOPHAGEAL REFLUX DISEASE
     Dosage: DAILY DOSE 10 MG
     Route: 048
     Dates: start: 20121018, end: 20121031
  4. GASMOTIN [Concomitant]
     Indication: GASTRITIS
     Dosage: DAILY DOSE 15 MG
     Route: 048
     Dates: start: 20121018, end: 20121031
  5. LIVACT [Concomitant]
     Indication: HYPOALBUMINAEMIA
     Dosage: DAILY DOSE 12.45 G
     Route: 048
     Dates: start: 20121213
  6. CALONAL [Concomitant]
     Indication: PYREXIA
     Dosage: UNK
     Route: 048
     Dates: start: 20121219
  7. DERDERANCE [Concomitant]
     Indication: CONSTIPATION
     Dosage: UNK
     Route: 054
     Dates: start: 20121220
  8. MS REISHIPPU [Concomitant]
     Indication: BACK PAIN
     Dosage: DAILY DOSE 20 G
     Route: 062
     Dates: start: 20121222
  9. PRIMPERAN [Concomitant]
     Indication: NAUSEA
     Dosage: DAILY DOSE 15 MG
     Route: 048
     Dates: start: 20121225
  10. MIYA-BM [Concomitant]
     Dosage: DAILY DOSE 3 G
     Route: 048
     Dates: start: 20130116
  11. LASIX [Concomitant]
     Dosage: DAILY DOSE 40 MG
     Route: 048
     Dates: start: 20121227
  12. ALDACTONE A [Concomitant]
     Indication: OEDEMA DUE TO HEPATIC DISEASE
     Dosage: DAILY DOSE 50 MG
     Route: 048
     Dates: start: 20121227
  13. ASTOMIN [Concomitant]
     Dosage: DAILY DOSE 30 MG
     Route: 048
     Dates: start: 20130114, end: 20130116
  14. ALLELOCK [Concomitant]
     Dosage: DAILY DOSE 10 MG
     Route: 048
     Dates: start: 20130115, end: 20130117
  15. TRANSAMIN [Concomitant]
     Dosage: DAILY DOSE 250 MG
     Route: 048
     Dates: start: 20130115, end: 20130117

REACTIONS (2)
  - Rectal ulcer haemorrhage [Recovered/Resolved]
  - Diarrhoea [Recovering/Resolving]
